FAERS Safety Report 6172569-0 (Version None)
Quarter: 2009Q2

REPORT INFORMATION
  Report Type: 
  Country: None (occurrence: None)
  Receive Date: 20090428
  Receipt Date: 20090414
  Transmission Date: 20091009
  Serious: No
  Sender: FDA-Public Use
  Company Number: 2009S1006700

PATIENT
  Age: 79 Year
  Sex: Female
  Weight: 58.9676 kg

DRUGS (2)
  1. DUONEB [Suspect]
     Indication: CHRONIC OBSTRUCTIVE PULMONARY DISEASE
     Dosage: 0.5 MG; INHALATION; 2.5 MG; INHALATION
     Route: 055
     Dates: start: 20090401
  2. FLOVENT [Suspect]
     Indication: CHRONIC OBSTRUCTIVE PULMONARY DISEASE
     Dosage: INHALATION
     Route: 055
     Dates: start: 20090401

REACTIONS (7)
  - AGITATION [None]
  - DYSPNOEA [None]
  - HAEMOPTYSIS [None]
  - MUSCLE TWITCHING [None]
  - NERVOUSNESS [None]
  - PALPITATIONS [None]
  - SWELLING [None]
